FAERS Safety Report 25052283 (Version 1)
Quarter: 2025Q1

REPORT INFORMATION
  Report Type: Spontaneous
  Country: CA (occurrence: CA)
  Receive Date: 20250307
  Receipt Date: 20250307
  Transmission Date: 20250409
  Serious: Yes (Life-Threatening, Other)
  Sender: PFIZER
  Company Number: CA-PFIZER INC-202500050859

PATIENT
  Age: 14 Year
  Sex: Female
  Weight: 49.887 kg

DRUGS (1)
  1. ALESSE 28 [Suspect]
     Active Substance: ETHINYL ESTRADIOL\LEVONORGESTREL
     Indication: Contraception
     Route: 048

REACTIONS (4)
  - Chest pain [Recovered/Resolved]
  - Heart rate increased [Recovered/Resolved]
  - Insomnia [Recovered/Resolved]
  - Irritability [Recovered/Resolved]
